FAERS Safety Report 21485526 (Version 2)
Quarter: 2022Q4

REPORT INFORMATION
  Report Type: Spontaneous
  Country: US (occurrence: None)
  Receive Date: 20221020
  Receipt Date: 20221025
  Transmission Date: 20230113
  Serious: Yes (Disabling)
  Sender: FDA-Public Use
  Company Number: 2022A347025

PATIENT
  Sex: Male

DRUGS (1)
  1. BUDESONIDE\FORMOTEROL\GLYCOPYRRONIUM [Suspect]
     Active Substance: BUDESONIDE\FORMOTEROL\GLYCOPYRRONIUM
     Indication: Chronic obstructive pulmonary disease
     Route: 055

REACTIONS (4)
  - Disability [Unknown]
  - Headache [Unknown]
  - Lung disorder [Unknown]
  - Drug effect less than expected [Unknown]
